FAERS Safety Report 15451982 (Version 1)
Quarter: 2018Q4

REPORT INFORMATION
  Report Type: Report from Study
  Country: IT (occurrence: IT)
  Receive Date: 20181001
  Receipt Date: 20181001
  Transmission Date: 20190204
  Serious: Yes (Hospitalization)
  Sender: FDA-Public Use
  Company Number: IT-PFIZER INC-2018389757

PATIENT
  Age: 93 Year
  Sex: Male

DRUGS (8)
  1. GENTOMIL [Suspect]
     Active Substance: GENTAMICIN SULFATE
     Indication: PNEUMONITIS
     Dosage: 2 DF, 1X/DAY
     Dates: start: 20180216, end: 20180222
  2. CARDIOASPIRIN [Concomitant]
     Active Substance: ASPIRIN
  3. RAMIPRIL. [Concomitant]
     Active Substance: RAMIPRIL
  4. MINIAS [Concomitant]
     Active Substance: LORMETAZEPAM
  5. SANDIMMUN [Concomitant]
     Active Substance: CYCLOSPORINE
  6. DILATREND [Concomitant]
     Active Substance: CARVEDILOL
  7. COLECALCIFEROL [Concomitant]
     Active Substance: CHOLECALCIFEROL
  8. LASIX [Concomitant]
     Active Substance: FUROSEMIDE

REACTIONS (2)
  - Renal impairment [Recovering/Resolving]
  - Medication error [Recovering/Resolving]

NARRATIVE: CASE EVENT DATE: 20180222
